FAERS Safety Report 5935997-1 (Version None)
Quarter: 2008Q4

REPORT INFORMATION
  Report Type: 
  Country: None (occurrence: None)
  Receive Date: 20081029
  Receipt Date: 20081029
  Transmission Date: 20090506
  Serious: Yes (Disabling, Other)
  Sender: FDA-Public Use
  Company Number: None

PATIENT
  Age: 42 Year
  Sex: Male
  Weight: 83.9154 kg

DRUGS (2)
  1. METHADONE HCL [Suspect]
     Indication: INTERVERTEBRAL DISC DEGENERATION
     Dosage: 10MG 6 TIMES A DAY PO
     Route: 048
     Dates: start: 20040101, end: 20081022
  2. METHADONE HCL [Suspect]
     Indication: INTERVERTEBRAL DISC PROTRUSION
     Dosage: 10MG 6 TIMES A DAY PO
     Route: 048
     Dates: start: 20040101, end: 20081022

REACTIONS (5)
  - ANOREXIA [None]
  - DEPRESSION [None]
  - DRUG DEPENDENCE [None]
  - LIBIDO DECREASED [None]
  - WEIGHT INCREASED [None]
